FAERS Safety Report 8766986 (Version 1)
Quarter: 2012Q4

REPORT INFORMATION
  Report Type: 
  Country: BR (occurrence: BR)
  Receive Date: 20120904
  Receipt Date: 20120904
  Transmission Date: 20130627
  Serious: Yes (Other)
  Sender: FDA-Public Use
  Company Number: PHHY2012BR076035

PATIENT
  Age: 71 Year
  Sex: Male

DRUGS (5)
  1. FORADIL [Suspect]
     Indication: DYSPNOEA EXERTIONAL
     Dosage: UNK UKN, UNK
     Dates: start: 2002
  2. FORASEQ [Suspect]
     Dosage: UNK UKN, UNK
  3. ONBREZ [Concomitant]
     Dosage: 150 ug, UNK
  4. SPIRIVA [Concomitant]
     Dosage: 1 DF, daily
     Dates: start: 2009
  5. BAMIFYLLINE [Concomitant]
     Indication: DYSPNOEA EXERTIONAL
     Dosage: UNK UKN, UNK

REACTIONS (7)
  - Pneumothorax [Unknown]
  - Dyspnoea [Unknown]
  - Oesophageal candidiasis [Unknown]
  - Oral candidiasis [Unknown]
  - Forced expiratory volume decreased [Unknown]
  - Vital capacity decreased [Unknown]
  - Dysphonia [Unknown]
